FAERS Safety Report 6149702-X (Version None)
Quarter: 2009Q2

REPORT INFORMATION
  Report Type: 
  Country: None (occurrence: None)
  Receive Date: 20090409
  Receipt Date: 20090403
  Transmission Date: 20091009
  Serious: Yes (Hospitalization, Other)
  Sender: FDA-Public Use
  Company Number: IL-ROXANE LABORATORIES, INC.-2009-RO-00334RO

PATIENT
  Age: 35 Year
  Sex: Male

DRUGS (11)
  1. MORPHINE [Suspect]
     Indication: PAIN
     Dosage: 1000MG
  2. MORPHINE [Suspect]
     Indication: HYPERAESTHESIA
     Dosage: 500MG
     Route: 042
  3. MORPHINE [Suspect]
     Route: 042
  4. CODEINE SUL HYT [Suspect]
     Indication: PAIN
     Dosage: 160MG
     Route: 048
  5. MEPERIDINE HCL [Suspect]
     Indication: PAIN
     Route: 030
  6. PARACETAMOL [Suspect]
     Indication: PAIN
     Dosage: 4000MG
  7. NSAIDS [Suspect]
     Indication: PAIN
  8. FENTANYL [Suspect]
     Indication: PAIN
  9. KETAMINE HCL [Suspect]
     Indication: PAIN
     Route: 042
  10. KETAMINE HCL [Suspect]
     Indication: HYPERAESTHESIA
     Dosage: 100MG
     Route: 042
  11. OXYCONTIN [Suspect]
     Indication: PAIN
     Dosage: 40MG
     Route: 048

REACTIONS (4)
  - ALLODYNIA [None]
  - DRUG INEFFECTIVE [None]
  - HYPERAESTHESIA [None]
  - SOMNOLENCE [None]
